FAERS Safety Report 12377066 (Version 1)
Quarter: 2016Q2

REPORT INFORMATION
  Report Type: Report from Study
  Country: US (occurrence: US)
  Receive Date: 20160517
  Receipt Date: 20160517
  Transmission Date: 20160815
  Serious: No
  Sender: FDA-Public Use
  Company Number: US-MALLINCKRODT-T201503681

PATIENT
  Sex: Male

DRUGS (2)
  1. REPOSITORY CORTICOTROPIN INJECTION [Suspect]
     Active Substance: CORTICOTROPIN
     Dosage: 40 UNITS TWICE A WEEK
     Route: 058
     Dates: start: 201601
  2. REPOSITORY CORTICOTROPIN INJECTION [Suspect]
     Active Substance: CORTICOTROPIN
     Indication: SARCOIDOSIS
     Dosage: 80 UNITS OR 1ML/TWICE WEEKLY
     Route: 058
     Dates: start: 20150629, end: 201601

REACTIONS (4)
  - Injection site erythema [Unknown]
  - Peripheral swelling [Recovered/Resolved]
  - Rash papular [Recovered/Resolved]
  - Lethargy [Recovered/Resolved]
